FAERS Safety Report 24291247 (Version 1)
Quarter: 2024Q3

REPORT INFORMATION
  Report Type: Spontaneous
  Country: US (occurrence: None)
  Receive Date: 20240906
  Receipt Date: 20240906
  Transmission Date: 20241017
  Serious: No
  Sender: DOMPE FARMACEUTICI
  Company Number: US-FARMAPROD-202308-2405

PATIENT
  Sex: Female

DRUGS (2)
  1. OXERVATE [Suspect]
     Active Substance: CENEGERMIN-BKBJ
     Indication: Keratitis
     Route: 047
     Dates: start: 20230705
  2. SAXENDA [Concomitant]
     Active Substance: LIRAGLUTIDE
     Dosage: 3 MG  /0.5 ML PEN INJECTOR.

REACTIONS (1)
  - Eye pain [Unknown]
